FAERS Safety Report 20097219 (Version 1)
Quarter: 2021Q4

REPORT INFORMATION
  Report Type: Spontaneous
  Country: US (occurrence: None)
  Receive Date: 20211122
  Receipt Date: 20211122
  Transmission Date: 20220304
  Serious: Yes (Life-Threatening, Hospitalization)
  Sender: FDA-Public Use
  Company Number: US-ROCHE-2956883

PATIENT
  Sex: Female

DRUGS (1)
  1. OCREVUS [Suspect]
     Active Substance: OCRELIZUMAB
     Indication: Relapsing multiple sclerosis
     Dosage: 6TH ROUND ON JANUARY 26, 2021
     Route: 042

REACTIONS (4)
  - Vasculitis [Unknown]
  - Subarachnoid haemorrhage [Unknown]
  - Cerebral haemorrhage [Unknown]
  - Cerebral vasoconstriction [Unknown]
